FAERS Safety Report 8963051 (Version 1)
Quarter: 2012Q4

REPORT INFORMATION
  Report Type: Spontaneous
  Country: US (occurrence: None)
  Receive Date: 20121204
  Receipt Date: 20121204
  Transmission Date: 20130627
  Serious: Yes (Other)
  Sender: FDA-Public Use
  Company Number: FK201203574

PATIENT
  Age: 68 Year

DRUGS (2)
  1. DEXAMETHASONE PHOSPHATE [Suspect]
     Indication: MULTIPLE MYELOMA
     Dosage: mg, Unknown
  2. VELCADE (BORTEZOMIB) [Suspect]
     Dosage: Unknown, Unknown

REACTIONS (2)
  - Periodontitis [None]
  - Mucosal inflammation [None]
